FAERS Safety Report 19434518 (Version 1)
Quarter: 2021Q2

REPORT INFORMATION
  Report Type: Spontaneous
  Country: US (occurrence: US)
  Receive Date: 20210617
  Receipt Date: 20210617
  Transmission Date: 20210717
  Serious: No
  Sender: FDA-Public Use
  Company Number: US-ROCHE-2661469

PATIENT
  Age: 76 Year
  Sex: Female

DRUGS (21)
  1. ALBUTEROL. [Concomitant]
     Active Substance: ALBUTEROL
     Route: 055
  2. AMLODIPINE [Concomitant]
     Active Substance: AMLODIPINE BESYLATE
     Route: 048
  3. GLIPIZIDE. [Concomitant]
     Active Substance: GLIPIZIDE
     Route: 048
  4. INSULIN ASPART [Concomitant]
     Active Substance: INSULIN ASPART
     Route: 058
  5. ATORVASTATIN [Concomitant]
     Active Substance: ATORVASTATIN
     Route: 048
  6. BACITRACIN. [Concomitant]
     Active Substance: BACITRACIN
     Dosage: 500UNITS/GRAM
     Route: 061
  7. CITALOPRAM [Concomitant]
     Active Substance: CITALOPRAM HYDROBROMIDE
     Route: 048
  8. FLUTICASONE. [Concomitant]
     Active Substance: FLUTICASONE
     Dosage: ONE SPRAY TO AFFECTED NOSTRIL
     Route: 045
  9. FLUTICASONE FUROATE;VILANTEROL TRIFENATATE [Concomitant]
     Active Substance: FLUTICASONE FUROATE\VILANTEROL TRIFENATATE
     Dosage: 100/25MCG ONE PUFF
     Route: 055
  10. INSULIN GLARGINE [Concomitant]
     Active Substance: INSULIN GLARGINE
     Route: 058
  11. BUMETANIDE. [Concomitant]
     Active Substance: BUMETANIDE
     Route: 048
  12. APIXABAN [Concomitant]
     Active Substance: APIXABAN
  13. GALANTAMINE. [Concomitant]
     Active Substance: GALANTAMINE
     Route: 048
  14. COLACE [Concomitant]
     Active Substance: DOCUSATE SODIUM
     Route: 048
  15. PEPCID [Concomitant]
     Active Substance: FAMOTIDINE
     Route: 048
  16. ACTEMRA [Suspect]
     Active Substance: TOCILIZUMAB
     Indication: PSORIASIS
     Route: 058
     Dates: start: 202006
  17. AMIODARONE [Concomitant]
     Active Substance: AMIODARONE
     Route: 048
  18. DICLOFENAC [Concomitant]
     Active Substance: DICLOFENAC
     Dosage: APPLY TO MOST PAINFUL AREA
     Route: 061
  19. CLOTRIMAZOLE. [Concomitant]
     Active Substance: CLOTRIMAZOLE
     Route: 061
  20. DOXAZOSIN [Concomitant]
     Active Substance: DOXAZOSIN MESYLATE
     Route: 048
  21. FERROUS GLUCONATE [Concomitant]
     Active Substance: FERROUS GLUCONATE
     Route: 048

REACTIONS (3)
  - Herpes zoster [Recovering/Resolving]
  - Product use in unapproved indication [Unknown]
  - Off label use [Unknown]
